FAERS Safety Report 19623929 (Version 1)
Quarter: 2021Q3

REPORT INFORMATION
  Report Type: Spontaneous
  Country: US (occurrence: US)
  Receive Date: 20210729
  Receipt Date: 20210729
  Transmission Date: 20211014
  Serious: No
  Sender: FDA-Public Use
  Company Number: US-ORGANON-O2107USA000172

PATIENT
  Age: 50 Year
  Sex: Female

DRUGS (3)
  1. NIVOLUMAB [Concomitant]
     Active Substance: NIVOLUMAB
     Indication: VULVAL CANCER
     Dosage: UNK
  2. BETAMETHASONE DIPROPIONATE AUGMENTED [Suspect]
     Active Substance: BETAMETHASONE DIPROPIONATE
     Indication: SKIN MASS
     Dosage: FOR 2?3 WEEKS
     Route: 061
  3. NIVOLUMAB [Concomitant]
     Active Substance: NIVOLUMAB
     Dosage: FOR 6 MONTHS

REACTIONS (1)
  - Product use in unapproved indication [Unknown]
